FAERS Safety Report 4950524-3 (Version None)
Quarter: 2006Q1

REPORT INFORMATION
  Report Type: 
  Country: None (occurrence: None)
  Receive Date: 20060322
  Receipt Date: 20060315
  Transmission Date: 20060701
  Serious: Yes (Hospitalization)
  Sender: FDA-Public Use
  Company Number: FR-GLAXOSMITHKLINE-B0416565A

PATIENT
  Age: 51 Year
  Sex: Male
  Weight: 64 kg

DRUGS (6)
  1. TELZIR [Suspect]
     Indication: HIV INFECTION
     Dosage: 400MG PER DAY
     Route: 065
     Dates: start: 20060131, end: 20060217
  2. NORVIR [Suspect]
     Indication: HIV INFECTION
     Dosage: 200MG PER DAY
     Route: 065
     Dates: start: 20060131, end: 20060217
  3. VIREAD [Suspect]
     Indication: HIV INFECTION
     Route: 065
     Dates: start: 20060131, end: 20060217
  4. EMTRIVA [Suspect]
     Indication: HIV INFECTION
     Dosage: 200MG PER DAY
     Route: 048
     Dates: start: 20060131, end: 20060217
  5. VALCYTE [Concomitant]
     Route: 048
  6. BACTRIM DS [Concomitant]
     Route: 065

REACTIONS (2)
  - PYREXIA [None]
  - RASH MACULO-PAPULAR [None]
